FAERS Safety Report 25522419 (Version 1)
Quarter: 2025Q3

REPORT INFORMATION
  Report Type: Spontaneous
  Country: EU (occurrence: EU)
  Receive Date: 20250707
  Receipt Date: 20250707
  Transmission Date: 20251020
  Serious: No
  Sender: ALKEM
  Company Number: EU-ALKEM LABORATORIES LIMITED-FR-ALKEM-2024-23640

PATIENT
  Sex: Female

DRUGS (2)
  1. DRONABINOL [Suspect]
     Active Substance: DRONABINOL
     Indication: Neuralgia
     Dosage: 2.5 MILLIGRAM, BID (IN 2 INTAKES) (SOFT CAPSULE MOLLE)
     Route: 065
  2. DRONABINOL [Suspect]
     Active Substance: DRONABINOL
     Indication: Pain
     Dosage: 2.5 MILLIGRAM, TID (3 DAILY INTAKES) (SOFT CAPSULE MOLLE)
     Route: 065

REACTIONS (3)
  - Pain [Recovering/Resolving]
  - Off label use [Unknown]
  - Product prescribing issue [Unknown]
